FAERS Safety Report 11272026 (Version 2)
Quarter: 2015Q4

REPORT INFORMATION
  Report Type: Report from Study
  Country: US (occurrence: US)
  Receive Date: 20150715
  Receipt Date: 20151009
  Transmission Date: 20160304
  Serious: Yes (Other)
  Sender: FDA-Public Use
  Company Number: US-AMGEN-USASP2015069771

PATIENT
  Age: 55 Year
  Sex: Female

DRUGS (2)
  1. ENBREL [Suspect]
     Active Substance: ETANERCEPT
     Indication: OSTEOARTHRITIS
     Dosage: 50 MG, QWK
     Route: 065
     Dates: start: 201502, end: 201507
  2. ENBREL [Suspect]
     Active Substance: ETANERCEPT
     Indication: SJOGREN^S SYNDROME

REACTIONS (6)
  - Drug ineffective [Unknown]
  - Cellulitis [Unknown]
  - Arthralgia [Unknown]
  - Arthropod bite [Unknown]
  - Allergy to arthropod bite [Unknown]
  - Off label use [Not Recovered/Not Resolved]

NARRATIVE: CASE EVENT DATE: 2015
